FAERS Safety Report 8873572 (Version 1)
Quarter: 2012Q4

REPORT INFORMATION
  Report Type: 
  Country: US (occurrence: US)
  Receive Date: 20121026
  Receipt Date: 20121026
  Transmission Date: 20130627
  Serious: No
  Sender: FDA-Public Use
  Company Number: US-AMGEN-USASP2012045726

PATIENT
  Age: 69 Year
  Sex: Female
  Weight: 97.51 kg

DRUGS (8)
  1. ENBREL [Suspect]
     Indication: PRODUCT USED FOR UNKNOWN INDICATION
     Dosage: 50 mg, qwk
     Route: 058
  2. DIOVAN [Concomitant]
     Dosage: 160 mg, UNK
  3. VITAMIN C + E [Concomitant]
  4. BISOPROLOL HCT [Concomitant]
     Dosage: 5-6.25 mg
  5. NEXIUM                             /01479302/ [Concomitant]
     Dosage: 40 mg, UNK
  6. FISH OIL [Concomitant]
  7. CALCIUM D                          /00944201/ [Concomitant]
  8. MULTIVITAMIN                       /00097801/ [Concomitant]

REACTIONS (2)
  - Back pain [Unknown]
  - Chest pain [Unknown]
